FAERS Safety Report 7016204-8 (Version None)
Quarter: 2010Q3

REPORT INFORMATION
  Report Type: 
  Country: None (occurrence: None)
  Receive Date: 20100927
  Receipt Date: 20100304
  Transmission Date: 20110219
  Serious: No
  Sender: FDA-Public Use
  Company Number: US-ASTRAZENECA-2010SE09497

PATIENT
  Sex: Female

DRUGS (1)
  1. ARIMIDEX [Suspect]
     Route: 048
     Dates: start: 20100201

REACTIONS (3)
  - CARPAL TUNNEL SYNDROME [None]
  - GRIP STRENGTH DECREASED [None]
  - OSTEODYSTROPHY [None]
